FAERS Safety Report 21609022 (Version 1)
Quarter: 2022Q4

REPORT INFORMATION
  Report Type: Spontaneous
  Country: CN (occurrence: CN)
  Receive Date: 20221117
  Receipt Date: 20221117
  Transmission Date: 20230113
  Serious: Yes (Hospitalization)
  Sender: FDA-Public Use
  Company Number: CN-AstraZeneca-2022A366747

PATIENT
  Age: 86 Year
  Sex: Male

DRUGS (3)
  1. METOPROLOL SUCCINATE [Suspect]
     Active Substance: METOPROLOL SUCCINATE
     Indication: Hypertension
     Route: 048
     Dates: start: 20220725, end: 20220801
  2. PITAVASTATIN CALCIUM [Suspect]
     Active Substance: PITAVASTATIN CALCIUM
     Indication: Hypertension
     Route: 048
     Dates: start: 20220725, end: 20220801
  3. BENAZEPRIL HYDROCHLORIDE [Suspect]
     Active Substance: BENAZEPRIL HYDROCHLORIDE
     Indication: Hypertension
     Route: 048
     Dates: start: 20220725, end: 20220801

REACTIONS (6)
  - Oesophagitis [Recovering/Resolving]
  - Decreased appetite [Unknown]
  - Asthenia [Recovering/Resolving]
  - Constipation [Recovering/Resolving]
  - Cachexia [Unknown]
  - Dyspepsia [Unknown]

NARRATIVE: CASE EVENT DATE: 20220801
